FAERS Safety Report 4296012-1 (Version None)
Quarter: 2004Q1

REPORT INFORMATION
  Report Type: 
  Country: None (occurrence: None)
  Receive Date: 20040212
  Receipt Date: 20040130
  Transmission Date: 20041129
  Serious: No
  Sender: FDA-Public Use
  Company Number: 2004AP00551

PATIENT
  Age: 66 Year
  Sex: Female
  Weight: 69 kg

DRUGS (8)
  1. IRESSA [Suspect]
     Indication: NON-SMALL CELL LUNG CANCER
     Dosage: 250 MG DAILY PO
     Route: 048
     Dates: start: 20030516
  2. TRAZODONE HCL [Concomitant]
  3. LEVOPRAID [Concomitant]
  4. LORAZEPAM [Concomitant]
  5. CISPLATIN [Concomitant]
  6. VINORELBINE TARTRATE [Concomitant]
  7. TAXOTERE [Concomitant]
  8. GEMCITABINE [Concomitant]

REACTIONS (1)
  - GINGIVITIS ULCERATIVE [None]
